FAERS Safety Report 17608913 (Version 1)
Quarter: 2020Q2

REPORT INFORMATION
  Report Type: Other
  Country: US (occurrence: US)
  Receive Date: 20200401
  Receipt Date: 20200401
  Transmission Date: 20200713
  Serious: No
  Sender: FDA-Public Use
  Company Number: US-ALEMBIC PHARMACUETICALS LIMITED-2020SCAL000111

PATIENT

DRUGS (1)
  1. PREGABALIN. [Suspect]
     Active Substance: PREGABALIN
     Indication: NEURALGIA
     Dosage: 200 MILLIGRAM, BOTTLE OF 90 CAPSULES

REACTIONS (6)
  - Product substitution issue [Unknown]
  - Altered visual depth perception [Unknown]
  - Condition aggravated [Unknown]
  - Neuralgia [Unknown]
  - Peripheral swelling [Unknown]
  - Balance disorder [Unknown]
